FAERS Safety Report 5843961-6 (Version None)
Quarter: 2008Q3

REPORT INFORMATION
  Report Type: 
  Country: None (occurrence: None)
  Receive Date: 20080731
  Receipt Date: 20080331
  Transmission Date: 20090109
  Serious: No
  Sender: FDA-Public Use
  Company Number: US200804000200

PATIENT
  Age: 71 Year
  Sex: Female
  Weight: 93.4 kg

DRUGS (9)
  1. BYETTA [Suspect]
     Indication: TYPE 2 DIABETES MELLITUS
     Dosage: 5 UG, 2/D, SUBCUTANEOUS
     Route: 058
     Dates: start: 20080218, end: 20080329
  2. METFORMIN HCL [Concomitant]
  3. AMARYL [Concomitant]
  4. TENORETIC 100 [Concomitant]
  5. POTASSIUM (POTASSIUM) [Concomitant]
  6. ASPIRIN [Concomitant]
  7. XANAX /USA/ (ALPRAZOLAM) [Concomitant]
  8. VITAMIN TAB [Concomitant]
  9. EXENATIDE PEN, DISPOSABLE DEVICE (EXENATIDE PEN)) PEN, DISPOSABLE [Concomitant]

REACTIONS (3)
  - BURNING SENSATION [None]
  - DECREASED APPETITE [None]
  - PAIN IN EXTREMITY [None]
